FAERS Safety Report 7346873-4 (Version None)
Quarter: 2011Q1

REPORT INFORMATION
  Report Type: 
  Country: None (occurrence: None)
  Receive Date: 20110311
  Receipt Date: 20110301
  Transmission Date: 20110831
  Serious: Yes (Death, Life-Threatening, Hospitalization, Other)
  Sender: FDA-Public Use
  Company Number: FR-CELGENEUS-056-20785-10040871

PATIENT
  Sex: Female
  Weight: 43 kg

DRUGS (11)
  1. OFLOCET [Concomitant]
     Dosage: 400 MILLIGRAM
     Route: 065
  2. SPASFON LYOC [Concomitant]
     Route: 065
  3. THALIDOMIDE [Suspect]
     Dosage: 50 MILLIGRAM
     Route: 048
     Dates: start: 20060201
  4. THALIDOMIDE [Suspect]
     Route: 048
     Dates: start: 20050518
  5. THALIDOMIDE [Suspect]
     Dosage: 50 MILLIGRAM
     Route: 048
     Dates: end: 20100311
  6. NEXIUM [Concomitant]
     Dosage: 20 MILLIGRAM
     Route: 065
  7. COLCHICINE [Concomitant]
     Dosage: 1 TABLET
     Route: 048
     Dates: start: 20010101
  8. OXYCONTIN [Concomitant]
     Dosage: 10 MILLIGRAM
     Route: 065
  9. TRIFLUCAN [Concomitant]
     Route: 065
  10. THALIDOMIDE [Suspect]
     Route: 048
     Dates: start: 19990601, end: 20100311
  11. LAROXYL [Concomitant]
     Dosage: 15 DROPS
     Route: 065

REACTIONS (3)
  - NEUROPATHY PERIPHERAL [None]
  - BEHCET'S SYNDROME [None]
  - ADENOCARCINOMA OF THE CERVIX [None]
